FAERS Safety Report 4997114-4 (Version None)
Quarter: 2006Q2

REPORT INFORMATION
  Report Type: 
  Country: None (occurrence: None)
  Receive Date: 20060508
  Receipt Date: 20060508
  Transmission Date: 20061013
  Serious: Yes (Life-Threatening, Hospitalization)
  Sender: FDA-Public Use
  Company Number: None

PATIENT
  Age: 33 Year
  Sex: Male
  Weight: 95.2554 kg

DRUGS (1)
  1. ELIDEL [Suspect]
     Indication: DERMATITIS ATOPIC
     Dosage: DAILY USE ON FACE AND NECK   DAILY/EVERY OTHER   TOP
     Route: 061
     Dates: start: 20031101, end: 20050701

REACTIONS (1)
  - NON-HODGKIN'S LYMPHOMA [None]
